FAERS Safety Report 15576197 (Version 1)
Quarter: 2018Q4

REPORT INFORMATION
  Report Type: Spontaneous
  Country: US (occurrence: US)
  Receive Date: 20181101
  Receipt Date: 20181101
  Transmission Date: 20190205
  Serious: No
  Sender: FDA-Public Use
  Company Number: US-PUMA BIOTECHNOLOGY, LTD.-2018US007939

PATIENT

DRUGS (3)
  1. LOPERAMIDE [Concomitant]
     Active Substance: LOPERAMIDE
     Indication: PROPHYLAXIS AGAINST DIARRHOEA
  2. EFFEXOR XR [Concomitant]
     Active Substance: VENLAFAXINE HYDROCHLORIDE
     Indication: PRODUCT USED FOR UNKNOWN INDICATION
  3. NERLYNX [Suspect]
     Active Substance: NERATINIB
     Indication: HER-2 POSITIVE BREAST CANCER
     Dosage: 3 TABLETS, TWICE DAILY
     Route: 048
     Dates: start: 2018

REACTIONS (5)
  - Diarrhoea [Unknown]
  - Off label use [Unknown]
  - Constipation [Unknown]
  - Confusional state [Unknown]
  - Nausea [Unknown]

NARRATIVE: CASE EVENT DATE: 2018
